FAERS Safety Report 8343077-3 (Version None)
Quarter: 2012Q2

REPORT INFORMATION
  Report Type: 
  Country: None (occurrence: None)
  Receive Date: 20120508
  Receipt Date: 20120424
  Transmission Date: 20120825
  Serious: Yes (Hospitalization, Disabling, Other)
  Sender: FDA-Public Use
  Company Number: US-MYLANLABS-2009AC000167

PATIENT
  Age: 65 Year
  Sex: Female
  Weight: 93.9 kg

DRUGS (37)
  1. DIGOXIN [Suspect]
     Route: 048
     Dates: start: 20050121
  2. ACTOS [Concomitant]
  3. FLUCONAZOLE [Concomitant]
  4. METFORMIN [Concomitant]
  5. INSULIN [Concomitant]
  6. LEXAPRO [Concomitant]
  7. LOTREL [Concomitant]
     Dosage: 5 - 20 MG CAP DAILY
  8. LOVASTATIN [Concomitant]
     Route: 048
  9. LASIX [Concomitant]
  10. CRESTOR [Concomitant]
  11. COMBIVENT [Concomitant]
     Dosage: 2 PUFFS
  12. MAXZIDE [Concomitant]
  13. AMIODARONE HCL [Concomitant]
  14. DELTASONE /00016001/ [Concomitant]
  15. AMARYL [Concomitant]
  16. COREG [Concomitant]
  17. SINGULAIR [Concomitant]
  18. DARVOCET-N 100 [Concomitant]
  19. ZOCOR [Concomitant]
  20. COUMADIN [Concomitant]
  21. CLONIDINE [Concomitant]
  22. TYLENOL (CAPLET) [Concomitant]
  23. DIOVAN [Concomitant]
  24. QUININE SULFATE [Concomitant]
  25. LOTENSIN [Concomitant]
  26. ASPIRIN [Concomitant]
     Route: 048
  27. AZMACORT [Concomitant]
     Dosage: 4 PUFFS
  28. PROTONIX [Concomitant]
  29. COLACE [Concomitant]
  30. ALLEGRA [Concomitant]
  31. NORVASC [Concomitant]
  32. PRANDIN /00882701/ [Concomitant]
  33. HYDRALAZINE HCL [Concomitant]
  34. ZELNORM [Concomitant]
  35. NEXIUM [Concomitant]
  36. METRONIDAZOLE [Concomitant]
  37. MINOCYCLINE HCL [Concomitant]
     Dosage: X14DAYS

REACTIONS (79)
  - EMOTIONAL DISTRESS [None]
  - ILL-DEFINED DISORDER [None]
  - DIABETIC NEUROPATHY [None]
  - CARDIAC STRESS TEST NORMAL [None]
  - BLOOD PRESSURE INCREASED [None]
  - EXCORIATION [None]
  - FEELING ABNORMAL [None]
  - HEART RATE IRREGULAR [None]
  - INJURY [None]
  - MUSCLE SPASMS [None]
  - ESSENTIAL HYPERTENSION [None]
  - CHEST DISCOMFORT [None]
  - OSTEOARTHRITIS [None]
  - HYPERGLYCAEMIA [None]
  - ASTHMA [None]
  - PULMONARY OEDEMA [None]
  - VENTRICULAR TACHYCARDIA [None]
  - CONSTIPATION [None]
  - ECHOCARDIOGRAM ABNORMAL [None]
  - URINARY TRACT INFECTION [None]
  - WEIGHT INCREASED [None]
  - PULSE PRESSURE DECREASED [None]
  - SENSORY LOSS [None]
  - FALL [None]
  - ARTHRALGIA [None]
  - POLYNEUROPATHY [None]
  - ABDOMINAL PAIN [None]
  - CARDIOMEGALY [None]
  - LIGAMENT SPRAIN [None]
  - MUSCULOSKELETAL PAIN [None]
  - OEDEMA PERIPHERAL [None]
  - TREATMENT NONCOMPLIANCE [None]
  - VITAMIN D DEFICIENCY [None]
  - ANXIETY [None]
  - ASTHENIA [None]
  - COUGH [None]
  - DIASTOLIC DYSFUNCTION [None]
  - OBESITY [None]
  - BLOOD GLUCOSE INCREASED [None]
  - ADVERSE DRUG REACTION [None]
  - DYSPNOEA EXERTIONAL [None]
  - FATIGUE [None]
  - PYREXIA [None]
  - PALPITATIONS [None]
  - ATRIAL FIBRILLATION [None]
  - CHEST X-RAY ABNORMAL [None]
  - OCULAR HYPERAEMIA [None]
  - OROPHARYNGEAL PAIN [None]
  - ECONOMIC PROBLEM [None]
  - PAIN [None]
  - BURNING SENSATION [None]
  - TREMOR [None]
  - DIABETES MELLITUS INADEQUATE CONTROL [None]
  - CHEST PAIN [None]
  - DIZZINESS [None]
  - EAR PAIN [None]
  - MYALGIA [None]
  - SKIN HYPERPIGMENTATION [None]
  - STRIDOR [None]
  - TINNITUS [None]
  - CELLULITIS [None]
  - METRORRHAGIA [None]
  - DYSPEPSIA [None]
  - CONDITION AGGRAVATED [None]
  - DYSPNOEA PAROXYSMAL NOCTURNAL [None]
  - EXERCISE TOLERANCE DECREASED [None]
  - SUPRAVENTRICULAR EXTRASYSTOLES [None]
  - CHRONIC OBSTRUCTIVE PULMONARY DISEASE [None]
  - HYPERLIPIDAEMIA [None]
  - DIARRHOEA [None]
  - WHEEZING [None]
  - POLLAKIURIA [None]
  - EYE DISORDER [None]
  - IRRITABLE BOWEL SYNDROME [None]
  - RENAL FAILURE [None]
  - DYSURIA [None]
  - ELECTROCARDIOGRAM ABNORMAL [None]
  - MAMMOGRAM ABNORMAL [None]
  - NECK PAIN [None]
